FAERS Safety Report 16481926 (Version 1)
Quarter: 2019Q2

REPORT INFORMATION
  Report Type: Spontaneous
  Country: US (occurrence: US)
  Receive Date: 20190627
  Receipt Date: 20190627
  Transmission Date: 20190711
  Serious: No
  Sender: FDA-Public Use
  Company Number: US-APOTEX-2019AP016050

PATIENT
  Age: 32 Year
  Sex: Male

DRUGS (4)
  1. LOVASTATIN. [Suspect]
     Active Substance: LOVASTATIN
     Dosage: 20 MG, QD
     Route: 065
     Dates: start: 201802
  2. LOVASTATIN. [Suspect]
     Active Substance: LOVASTATIN
     Indication: PRODUCT USED FOR UNKNOWN INDICATION
     Dosage: 10 MG, QD
     Route: 065
     Dates: start: 201607
  3. LOVASTATIN. [Suspect]
     Active Substance: LOVASTATIN
     Dosage: 40 MG, QD
     Route: 065
  4. LOVASTATIN. [Suspect]
     Active Substance: LOVASTATIN
     Dosage: 20 MG, QD
     Route: 065

REACTIONS (2)
  - Product use in unapproved indication [Unknown]
  - Irritability [Recovering/Resolving]

NARRATIVE: CASE EVENT DATE: 201607
